FAERS Safety Report 7312353-5 (Version None)
Quarter: 2011Q1

REPORT INFORMATION
  Report Type: 
  Country: None (occurrence: None)
  Receive Date: 20110224
  Receipt Date: 20100818
  Transmission Date: 20110831
  Serious: Yes (Life-Threatening, Hospitalization)
  Sender: FDA-Public Use
  Company Number: ZA-TEVA-245995ISR

PATIENT
  Sex: Female
  Weight: 45 kg

DRUGS (11)
  1. STALEVO 100 [Suspect]
     Indication: PARKINSON'S DISEASE
     Route: 048
     Dates: start: 20100101, end: 20100403
  2. ESCITALOPRAM [Suspect]
     Indication: DEPRESSION
     Route: 048
     Dates: start: 20081101, end: 20100403
  3. ERGOCALCIFEROL [Concomitant]
     Indication: OSTEOPOROSIS
     Route: 048
     Dates: start: 20081101
  4. OCUVITE LUTEIN [Concomitant]
     Indication: MACULAR DEGENERATION
  5. FENTANYL [Suspect]
     Indication: OSTEOARTHRITIS
     Route: 062
     Dates: end: 20100402
  6. SINEMET [Concomitant]
     Indication: PARKINSON'S DISEASE
     Dosage: 50/200 MG OD FOR YEARS
     Route: 048
  7. ESCITALOPRAM [Suspect]
     Indication: ANXIETY
  8. AZILECT [Suspect]
     Indication: PARKINSON'S DISEASE
     Route: 048
     Dates: start: 20100101, end: 20100401
  9. ACETAMINOPHEN AND TRAMADOL HCL [Suspect]
     Indication: OSTEOARTHRITIS
     Route: 048
     Dates: start: 20090101, end: 20100403
  10. CELECOXIB [Concomitant]
     Indication: OSTEOARTHRITIS
     Route: 048
     Dates: start: 20100201, end: 20100403
  11. ZOPICLONE [Concomitant]
     Indication: INSOMNIA
     Route: 048
     Dates: start: 20081101, end: 20100403

REACTIONS (11)
  - RHABDOMYOLYSIS [None]
  - PSYCHOTIC DISORDER [None]
  - DYSKINESIA [None]
  - HALLUCINATION, VISUAL [None]
  - DELUSION [None]
  - HYPERKALAEMIA [None]
  - HYPERHIDROSIS [None]
  - PYREXIA [None]
  - HYPERTENSION [None]
  - TACHYCARDIA [None]
  - RENAL FAILURE [None]
